FAERS Safety Report 7323320-X (Version None)
Quarter: 2011Q1

REPORT INFORMATION
  Report Type: 
  Country: None (occurrence: None)
  Receive Date: 20110301
  Receipt Date: 20110222
  Transmission Date: 20110831
  Serious: Yes (Other)
  Sender: FDA-Public Use
  Company Number: GB-PFIZER INC-2011039069

PATIENT
  Age: 68 Year
  Sex: Male

DRUGS (6)
  1. DEXAMETHASONE [Concomitant]
     Dosage: 20 MG, WEEKLY
  2. MORPHINE SULFATE [Concomitant]
  3. GABAPENTIN [Suspect]
     Indication: NEURALGIA
     Dosage: 600 MG, 3X/DAY
     Route: 048
     Dates: start: 20070701, end: 20110210
  4. FINASTERIDE [Concomitant]
  5. LENALIDOMIDE [Suspect]
     Indication: MYELOMA RECURRENCE
     Dosage: 25 MG, 1X/DAY
     Route: 048
     Dates: start: 20091001, end: 20100902
  6. CLEXANE [Concomitant]
     Dosage: 40 MG, 1X/DAY
     Dates: end: 20100902

REACTIONS (3)
  - AUTOIMMUNE THROMBOCYTOPENIA [None]
  - PETECHIAE [None]
  - PLATELET COUNT DECREASED [None]
